FAERS Safety Report 7513055-2 (Version None)
Quarter: 2011Q2

REPORT INFORMATION
  Report Type: 
  Country: None (occurrence: None)
  Receive Date: 20110525
  Receipt Date: 20110525
  Transmission Date: 20111010
  Serious: No
  Sender: FDA-Public Use
  Company Number: None

PATIENT
  Age: 62 Year
  Sex: Male
  Weight: 81.6475 kg

DRUGS (1)
  1. NIACIN [Suspect]
     Indication: SINUS DISORDER
     Dosage: 1500MG TO 3000MG DAY PO
     Route: 048
     Dates: start: 19870101, end: 20110503

REACTIONS (3)
  - VISION BLURRED [None]
  - CYSTOID MACULAR OEDEMA [None]
  - EYE DISORDER [None]
